FAERS Safety Report 25524691 (Version 1)
Quarter: 2025Q3

REPORT INFORMATION
  Report Type: Spontaneous
  Country: US (occurrence: None)
  Receive Date: 20250704
  Receipt Date: 20250704
  Transmission Date: 20251021
  Serious: Yes (Death, Hospitalization)
  Sender: FDA-CTU
  Company Number: None

PATIENT
  Age: 75 Year
  Sex: Male
  Weight: 69.7 kg

DRUGS (4)
  1. CARBOPLATIN [Suspect]
     Active Substance: CARBOPLATIN
     Dates: start: 20231128, end: 20240102
  2. TAXOL [Concomitant]
     Active Substance: PACLITAXEL
  3. abixaban [Concomitant]
  4. VORICONAZOLE [Concomitant]
     Active Substance: VORICONAZOLE

REACTIONS (14)
  - Pyrexia [None]
  - Chills [None]
  - Nasal congestion [None]
  - Haemoptysis [None]
  - Pulmonary artery occlusion [None]
  - Atrial flutter [None]
  - Pneumonia [None]
  - Immunodeficiency [None]
  - Pneumothorax [None]
  - Metastases to liver [None]
  - Bronchopulmonary aspergillosis [None]
  - Pseudomonas infection [None]
  - Agitation [None]
  - Weaning failure [None]

NARRATIVE: CASE EVENT DATE: 20250306
